FAERS Safety Report 7186733-5 (Version None)
Quarter: 2010Q4

REPORT INFORMATION
  Report Type: 
  Country: None (occurrence: None)
  Receive Date: 20101222
  Receipt Date: 20101217
  Transmission Date: 20110411
  Serious: Yes (Death)
  Sender: FDA-Public Use
  Company Number: JP-PFIZER INC-2010124771

PATIENT
  Age: 66 Year
  Sex: Female

DRUGS (12)
  1. NOVASTAN [Suspect]
     Indication: HEPARIN-INDUCED THROMBOCYTOPENIA
     Dosage: 0.4 MCG/KG/MIN
     Route: 041
     Dates: start: 20080918, end: 20080922
  2. NOVASTAN [Suspect]
     Dosage: 0.6 MCG/KG/MIN
     Route: 041
     Dates: start: 20080922, end: 20080922
  3. NOVASTAN [Suspect]
     Dosage: 0.1 MCG/KG/MIN
     Route: 041
     Dates: start: 20080922, end: 20080922
  4. NOVASTAN [Suspect]
     Dosage: 0.2 MCG/KG/MIN
     Route: 041
     Dates: start: 20080922
  5. HEPARIN SODIUM [Concomitant]
     Dosage: UNK
     Route: 051
     Dates: start: 20080911
  6. FULCALIQ [Concomitant]
     Dosage: 1 VIAL, UNK
     Route: 042
     Dates: start: 20080911
  7. ISOTONIC SOLUTIONS [Concomitant]
     Dosage: 500 ML DAILY
     Route: 042
     Dates: start: 20080911
  8. MEROPENEM [Concomitant]
     Dosage: 1.5 G DAILY
     Route: 042
     Dates: start: 20080911
  9. FUNGUARD [Concomitant]
     Dosage: 150 MG DAILY
     Route: 042
     Dates: start: 20080911
  10. OMEPRAL [Concomitant]
     Indication: PROPHYLAXIS
     Dosage: 2 AMPULES, UNK
     Route: 042
     Dates: start: 20080911
  11. PREDONINE [Concomitant]
     Dosage: 60 MG DAILY
     Route: 042
     Dates: start: 20080911
  12. PANTOL INJ. [Concomitant]
     Dosage: 1 AMPULE, UNK
     Route: 042
     Dates: start: 20081001

REACTIONS (1)
  - INTERSTITIAL LUNG DISEASE [None]
